FAERS Safety Report 22902482 (Version 3)
Quarter: 2023Q4

REPORT INFORMATION
  Report Type: Spontaneous
  Country: US (occurrence: US)
  Receive Date: 20230904
  Receipt Date: 20231017
  Transmission Date: 20240110
  Serious: Yes (Other)
  Sender: FDA-Public Use
  Company Number: US-AMGEN-USASP2023152592

PATIENT
  Age: 50 Year
  Sex: Male

DRUGS (2)
  1. REPATHA [Suspect]
     Active Substance: EVOLOCUMAB
     Indication: Product used for unknown indication
     Dosage: UNK
     Route: 065
     Dates: start: 20230820
  2. PRALUENT [Concomitant]
     Active Substance: ALIROCUMAB
     Dosage: UNK
     Route: 065

REACTIONS (4)
  - Drug eruption [Not Recovered/Not Resolved]
  - Swelling face [Unknown]
  - Erythema [Unknown]
  - Arthralgia [Unknown]

NARRATIVE: CASE EVENT DATE: 20230820
